FAERS Safety Report 7545180-4 (Version None)
Quarter: 2011Q2

REPORT INFORMATION
  Report Type: 
  Country: None (occurrence: None)
  Receive Date: 20110531
  Receipt Date: 20110524
  Transmission Date: 20111010
  Serious: Yes (Hospitalization)
  Sender: FDA-Public Use
  Company Number: 2011028433

PATIENT
  Age: 55 Year
  Sex: Female
  Weight: 55.3388 kg

DRUGS (25)
  1. BANOPHEN (DIPHENHYDRAMINE HYDROCHLORIDE) [Concomitant]
  2. AFRIN [Concomitant]
  3. UNIPHYL [Concomitant]
  4. FOLIC ACID [Concomitant]
  5. HIZENTRA [Suspect]
     Indication: IMMUNODEFICIENCY COMMON VARIABLE
     Dosage: 2 G QD, 2GM VIA 1 SITE OVER 1 HOUR, SUBCUTANEOUS
     Route: 058
     Dates: start: 20110217
  6. VICODIN ES [Concomitant]
  7. FENTANYL [Concomitant]
  8. POTASSIUM CHLORIDE [Concomitant]
  9. LEVOXYL [Concomitant]
  10. ALLEGRA D 24 HOUR [Concomitant]
  11. LORAZEPAM [Concomitant]
  12. ALEVE [Concomitant]
  13. HIZENTRA [Suspect]
     Dosage: SUBCUTANEOUS
     Route: 058
     Dates: start: 20110307
  14. HIZENTRA [Suspect]
     Dosage: SUBCUTANEOUS
     Route: 058
     Dates: start: 20110413
  15. CRESTOR [Concomitant]
  16. TRAZODONE HCL [Concomitant]
  17. SINGULAIR [Concomitant]
  18. TOPAMAX [Concomitant]
  19. BISACODYL [Concomitant]
  20. REGLAN [Concomitant]
  21. DOCUSATE PLUS (DOCUSATE) [Concomitant]
  22. WELLBUTRIN XL [Concomitant]
  23. SOMA [Concomitant]
  24. PROVIGIL [Concomitant]
  25. ICAPS [Concomitant]

REACTIONS (6)
  - MIGRAINE [None]
  - FATIGUE [None]
  - ASTHENIA [None]
  - DEEP VEIN THROMBOSIS [None]
  - SKIN INFECTION [None]
  - POST PROCEDURAL COMPLICATION [None]
